FAERS Safety Report 5563455-5 (Version None)
Quarter: 2007Q4

REPORT INFORMATION
  Report Type: 
  Country: None (occurrence: None)
  Receive Date: 20071213
  Receipt Date: 20071213
  Transmission Date: 20080405
  Serious: Yes (Hospitalization)
  Sender: FDA-Public Use
  Company Number: None

PATIENT
  Sex: Male
  Weight: 77.25 kg

DRUGS (4)
  1. FLUOROURACIL [Suspect]
     Dosage: 0 MG (PT HAD NOT REC'D ANY PRIOR TO OR DURING THIS HOSPITALIZATION
  2. XELODA [Suspect]
     Dosage: 54000 MG
  3. CAMPTOSAR [Concomitant]
     Dosage: 70 MG
  4. LEUCOVORIN CALCIUM [Concomitant]
     Dosage: O MG; PT HAD NOT REC'D ANY PRIOR TO OR DURING THIS HOSPITALIZATION

REACTIONS (10)
  - ANAEMIA [None]
  - ASTHENIA [None]
  - CULTURE URINE POSITIVE [None]
  - DEHYDRATION [None]
  - DIZZINESS [None]
  - ENTEROCOCCAL INFECTION [None]
  - HIATUS HERNIA [None]
  - OESOPHAGEAL STENOSIS [None]
  - RENAL FAILURE [None]
  - URINARY RETENTION [None]
